FAERS Safety Report 16893947 (Version 2)
Quarter: 2019Q4

REPORT INFORMATION
  Report Type: Report from Study
  Country: CO (occurrence: CO)
  Receive Date: 20191008
  Receipt Date: 20191108
  Transmission Date: 20200122
  Serious: Yes (Other)
  Sender: FDA-Public Use
  Company Number: CO-JNJFOC-20190828128

PATIENT
  Age: 80 Year
  Sex: Female
  Weight: 57 kg

DRUGS (1)
  1. STELARA [Suspect]
     Active Substance: USTEKINUMAB
     Indication: PSORIASIS
     Dosage: 45 MG/0.5 ML
     Route: 058
     Dates: start: 20150903, end: 20190516

REACTIONS (8)
  - Helicobacter gastritis [Unknown]
  - Arthritis [Not Recovered/Not Resolved]
  - Osteoarthritis [Not Recovered/Not Resolved]
  - Internal haemorrhage [Unknown]
  - Gastrointestinal oedema [Unknown]
  - Colon neoplasm [Unknown]
  - Blood cholesterol increased [Not Recovered/Not Resolved]
  - Osteoporosis [Not Recovered/Not Resolved]
